FAERS Safety Report 12394842 (Version 2)
Quarter: 2016Q2

REPORT INFORMATION
  Report Type: Spontaneous
  Country: VN (occurrence: VN)
  Receive Date: 20160523
  Receipt Date: 20160525
  Transmission Date: 20160815
  Serious: Yes (Other)
  Sender: FDA-Public Use
  Company Number: VN-ELI_LILLY_AND_COMPANY-VN201605006784

PATIENT
  Age: 60 Year
  Sex: Male

DRUGS (5)
  1. FOLINIC ACID [Suspect]
     Active Substance: LEUCOVORIN
     Indication: COLORECTAL CANCER METASTATIC
     Dosage: UNK UNK, UNKNOWN
     Route: 065
  2. ERBITUX [Suspect]
     Active Substance: CETUXIMAB
     Indication: COLORECTAL CANCER METASTATIC
     Dosage: 5 VIALS, WEEKLY (1/W)
     Route: 042
     Dates: start: 20160504
  3. IRINOTECAN [Suspect]
     Active Substance: IRINOTECAN
     Indication: COLORECTAL CANCER METASTATIC
     Dosage: UNK UNK, UNKNOWN
     Route: 065
  4. 5 FU [Suspect]
     Active Substance: FLUOROURACIL
     Indication: COLORECTAL CANCER METASTATIC
     Dosage: UNK UNK, UNKNOWN
     Route: 065
  5. ERBITUX [Suspect]
     Active Substance: CETUXIMAB
     Dosage: 3 VIALS, WEEKLY (1/W)
     Route: 042
     Dates: start: 20160511

REACTIONS (4)
  - Hepatic enzyme increased [Unknown]
  - Off label use [Unknown]
  - Stomatitis [Not Recovered/Not Resolved]
  - Blister [Recovering/Resolving]

NARRATIVE: CASE EVENT DATE: 201605
